FAERS Safety Report 24205527 (Version 4)
Quarter: 2024Q4

REPORT INFORMATION
  Report Type: Spontaneous
  Country: US (occurrence: US)
  Receive Date: 20240813
  Receipt Date: 20241017
  Transmission Date: 20250114
  Serious: Yes (Other)
  Sender: PFIZER
  Company Number: US-PFIZER INC-PV202400104840

PATIENT
  Age: 70 Year
  Sex: Female

DRUGS (2)
  1. TUKYSA [Suspect]
     Active Substance: TUCATINIB
     Dosage: TAKE 50MG WITH 150MG (200MG, TWICE DAILY)
  2. TUKYSA [Suspect]
     Active Substance: TUCATINIB
     Dosage: TAKE 50MG WITH 150MG (200MG, TWICE DAILY)

REACTIONS (3)
  - Pneumonia [Unknown]
  - Blood glucose decreased [Unknown]
  - Product label confusion [Unknown]
